FAERS Safety Report 6774890-1 (Version None)
Quarter: 2010Q2

REPORT INFORMATION
  Report Type: 
  Country: None (occurrence: None)
  Receive Date: 20100617
  Receipt Date: 20100610
  Transmission Date: 20101027
  Serious: Yes (Hospitalization)
  Sender: FDA-Public Use
  Company Number: US-BAYER-201016654BCC

PATIENT
  Age: 20 Year
  Sex: Female
  Weight: 59 kg

DRUGS (1)
  1. MIDOL [Suspect]
     Indication: SELF-INJURIOUS IDEATION
     Dosage: ALMOST 40 CAPLETS
     Route: 048
     Dates: start: 20100609

REACTIONS (1)
  - VOMITING [None]
